FAERS Safety Report 9382364 (Version 4)
Quarter: 2014Q2

REPORT INFORMATION
  Report Type: Report from Study
  Country: US (occurrence: US)
  Receive Date: 20130703
  Receipt Date: 20140414
  Transmission Date: 20141212
  Serious: Yes (Hospitalization, Disabling, Other)
  Sender: FDA-Public Use
  Company Number: US-BRISTOL-MYERS SQUIBB COMPANY-19043272

PATIENT
  Age: 60 Year
  Sex: Male
  Weight: 91.3 kg

DRUGS (7)
  1. IPILIMUMAB [Suspect]
     Indication: MALIGNANT MELANOMA
     Dosage: 2ND DOSE ON 12JUN13
     Dates: start: 20130522
  2. AMITRIPTYLINE [Concomitant]
     Route: 048
  3. K-DUR [Concomitant]
     Route: 048
  4. LISINOPRIL [Concomitant]
     Route: 048
  5. SIMVASTATIN [Concomitant]
     Dosage: AT BEDTIME
     Route: 048
  6. NORCO [Concomitant]
     Route: 048
  7. ATIVAN [Concomitant]
     Route: 048

REACTIONS (4)
  - Temporal arteritis [Recovered/Resolved with Sequelae]
  - Retinal haemorrhage [Not Recovered/Not Resolved]
  - Blindness [Unknown]
  - Nervous system disorder [Recovering/Resolving]
